FAERS Safety Report 5853328-2 (Version None)
Quarter: 2008Q3

REPORT INFORMATION
  Report Type: 
  Country: None (occurrence: None)
  Receive Date: 20080821
  Receipt Date: 20080811
  Transmission Date: 20090109
  Serious: Yes (Death)
  Sender: FDA-Public Use
  Company Number: PL-PFIZER INC-2008062830

PATIENT
  Age: 40 Year
  Sex: Male

DRUGS (1)
  1. ZELDOX (CAPSULES) [Suspect]
     Indication: SCHIZOPHRENIA

REACTIONS (2)
  - ELECTROCARDIOGRAM QT PROLONGED [None]
  - MYOCARDIAL INFARCTION [None]
